FAERS Safety Report 9529301 (Version 2)
Quarter: 2014Q1

REPORT INFORMATION
  Report Type: Spontaneous
  Country: US (occurrence: US)
  Receive Date: 20130917
  Receipt Date: 20140303
  Transmission Date: 20141002
  Serious: Yes (Hospitalization)
  Sender: FDA-Public Use
  Company Number: US-B.I. PHARMACEUTICALS,INC./RIDGEFIELD-2013-BI-28898BP

PATIENT
  Sex: Male
  Weight: 102.1 kg

DRUGS (13)
  1. PRADAXA [Suspect]
     Indication: ATRIAL FIBRILLATION
     Dosage: 150 MG
     Route: 048
     Dates: start: 20110720, end: 20111003
  2. PRADAXA [Suspect]
     Indication: CORONARY ARTERY DISEASE
  3. OMEPRAZOLE [Concomitant]
     Route: 065
     Dates: start: 2007, end: 201109
  4. ISOSORBIDE MONONITRATE [Concomitant]
     Route: 065
     Dates: start: 200503, end: 2011
  5. HYDRALAZINE [Concomitant]
     Route: 065
     Dates: start: 200904, end: 201206
  6. CARVEDILOL [Concomitant]
     Route: 065
     Dates: start: 2007, end: 201109
  7. GLIPIZIDE [Concomitant]
     Route: 065
     Dates: start: 201105, end: 201206
  8. BUMEX [Concomitant]
     Route: 065
     Dates: start: 2007, end: 201206
  9. VITAMIN D [Concomitant]
     Route: 065
     Dates: start: 200905, end: 201206
  10. LASIX [Concomitant]
     Route: 065
     Dates: start: 200905, end: 201206
  11. PLAVIX [Concomitant]
     Route: 065
     Dates: start: 199701, end: 201206
  12. PRILOSEC [Concomitant]
     Route: 065
     Dates: start: 1998, end: 201206
  13. PREDNISONE [Concomitant]
     Route: 065

REACTIONS (2)
  - Haemorrhoidal haemorrhage [Unknown]
  - Anaemia [Unknown]
